FAERS Safety Report 18606991 (Version 1)
Quarter: 2020Q4

REPORT INFORMATION
  Report Type: Spontaneous
  Country: CN (occurrence: CN)
  Receive Date: 20201211
  Receipt Date: 20201211
  Transmission Date: 20210114
  Serious: Yes (Hospitalization)
  Sender: FDA-Public Use
  Company Number: NVSC2020CN327325

PATIENT
  Age: 34 Year
  Sex: Female
  Weight: 61.5 kg

DRUGS (4)
  1. TEGRETOL [Suspect]
     Active Substance: CARBAMAZEPINE
     Indication: CONVERSION DISORDER
     Dosage: 0.1 G, BID (1-0-0-1 SINCE 20:00)
     Route: 048
     Dates: start: 20201103
  2. LORAZEPAM. [Concomitant]
     Active Substance: LORAZEPAM
     Indication: PRODUCT USED FOR UNKNOWN INDICATION
     Dosage: 1 MG, QN
     Route: 065
  3. TEGRETOL [Suspect]
     Active Substance: CARBAMAZEPINE
     Dosage: 0.5 DF (0.2 G), BID (0.5-0-0-0.5)
     Route: 048
     Dates: start: 20201113, end: 20201115
  4. OLANZAPINE. [Concomitant]
     Active Substance: OLANZAPINE
     Indication: CONVERSION DISORDER
     Dosage: 5 MG, BID
     Route: 048
     Dates: start: 20201028, end: 20201202

REACTIONS (1)
  - Pruritus [Recovered/Resolved]

NARRATIVE: CASE EVENT DATE: 20201113
